FAERS Safety Report 17236845 (Version 1)
Quarter: 2020Q1

REPORT INFORMATION
  Report Type: Spontaneous
  Country: CA (occurrence: CA)
  Receive Date: 20200106
  Receipt Date: 20200106
  Transmission Date: 20200409
  Serious: Yes (Hospitalization, Other)
  Sender: FDA-Public Use
  Company Number: CA-APOTEX-2019AP026971

PATIENT
  Age: 61 Year
  Sex: Male

DRUGS (5)
  1. DIPHENHYDRAMINE. [Suspect]
     Active Substance: DIPHENHYDRAMINE
     Indication: SLEEP DISORDER
     Dosage: UNK, Q.H.S. 500 MG OR MORE AT NIGHT FOR MORE THAN 10 YEARS
     Route: 065
  2. DIPHENHYDRAMINE. [Suspect]
     Active Substance: DIPHENHYDRAMINE
     Indication: ANXIOLYTIC THERAPY
  3. HYDROMORPHONE [Suspect]
     Active Substance: HYDROMORPHONE
     Indication: PRODUCT USED FOR UNKNOWN INDICATION
     Dosage: UNK AT RAPIDLY ESCALATING DOSES
     Route: 048
  4. LORAZEPAM. [Suspect]
     Active Substance: LORAZEPAM
     Indication: PRODUCT USED FOR UNKNOWN INDICATION
     Dosage: UNK
     Route: 065
  5. COCAINE [Suspect]
     Active Substance: COCAINE
     Indication: PRODUCT USED FOR UNKNOWN INDICATION
     Dosage: UNK
     Route: 065

REACTIONS (18)
  - Agitation [Recovered/Resolved]
  - Confusional state [Not Recovered/Not Resolved]
  - Aphasia [Recovering/Resolving]
  - Cognitive disorder [Recovering/Resolving]
  - Drug use disorder [Unknown]
  - Psychotic disorder [Unknown]
  - Autonomic nervous system imbalance [Unknown]
  - Sedation [Unknown]
  - Seizure [Unknown]
  - Akathisia [Unknown]
  - Hypertonia [Recovering/Resolving]
  - Myoclonus [Unknown]
  - Amnesia [Recovering/Resolving]
  - Toxicity to various agents [Unknown]
  - Withdrawal syndrome [Unknown]
  - Delirium [Recovering/Resolving]
  - Sinus tachycardia [Unknown]
  - Hyperhidrosis [Recovering/Resolving]
